FAERS Safety Report 7043575-9 (Version None)
Quarter: 2010Q4

REPORT INFORMATION
  Report Type: 
  Country: None (occurrence: None)
  Receive Date: 20101013
  Receipt Date: 20101006
  Transmission Date: 20110411
  Serious: Yes (Other)
  Sender: FDA-Public Use
  Company Number: A0885238A

PATIENT
  Age: 79 Year
  Sex: Male

DRUGS (2)
  1. AVANDAMET [Suspect]
     Dosage: 1TAB TWICE PER DAY
     Route: 048
     Dates: start: 20100925, end: 20101004
  2. UNKNOWN [Concomitant]

REACTIONS (1)
  - CEREBROVASCULAR ACCIDENT [None]
